FAERS Safety Report 9504870 (Version 1)
Quarter: 2013Q3

REPORT INFORMATION
  Report Type: Report from Study
  Country: IR (occurrence: IR)
  Receive Date: 20130906
  Receipt Date: 20130906
  Transmission Date: 20140515
  Serious: Yes (Death)
  Sender: FDA-Public Use
  Company Number: IR-BAXTER-2013BAX034928

PATIENT
  Sex: 0

DRUGS (5)
  1. KIOVIG [Suspect]
     Indication: CONGO-CRIMEAN HAEMORRHAGIC FEVER
     Dosage: 30-50 G
     Route: 042
  2. KIOVIG [Suspect]
     Indication: OFF LABEL USE
  3. RIBAVIRIN [Suspect]
     Indication: CONGO-CRIMEAN HAEMORRHAGIC FEVER
     Dosage: LOADING DOSE
  4. RIBAVIRIN [Suspect]
  5. RIBAVIRIN [Suspect]

REACTIONS (1)
  - Death [Fatal]
